FAERS Safety Report 19226184 (Version 9)
Quarter: 2025Q2

REPORT INFORMATION
  Report Type: Report from Study
  Country: CH (occurrence: CH)
  Receive Date: 20210506
  Receipt Date: 20250604
  Transmission Date: 20250717
  Serious: Yes (Hospitalization, Other)
  Sender: TAKEDA
  Company Number: CH-TAKEDA-2021TUS028086

PATIENT
  Age: 72 Year
  Sex: Male

DRUGS (8)
  1. RURIOCTOCOG ALFA PEGOL [Suspect]
     Active Substance: RURIOCTOCOG ALFA PEGOL
     Indication: Factor VIII deficiency
     Dosage: 2000 INTERNATIONAL UNIT, 1/WEEK
     Dates: start: 20190523
  2. RURIOCTOCOG ALFA PEGOL [Suspect]
     Active Substance: RURIOCTOCOG ALFA PEGOL
     Dosage: 2000 INTERNATIONAL UNIT, 1/WEEK
  3. RURIOCTOCOG ALFA PEGOL [Suspect]
     Active Substance: RURIOCTOCOG ALFA PEGOL
     Dosage: 3000 INTERNATIONAL UNIT, 1/WEEK
  4. RURIOCTOCOG ALFA PEGOL [Suspect]
     Active Substance: RURIOCTOCOG ALFA PEGOL
     Dosage: 2000 INTERNATIONAL UNIT, 1/WEEK
  5. RURIOCTOCOG ALFA PEGOL [Suspect]
     Active Substance: RURIOCTOCOG ALFA PEGOL
     Dosage: 3000 INTERNATIONAL UNIT, 1/WEEK
     Dates: start: 20250110
  6. RURIOCTOCOG ALFA PEGOL [Suspect]
     Active Substance: RURIOCTOCOG ALFA PEGOL
     Dosage: 3000 INTERNATIONAL UNIT, 1/WEEK
     Dates: start: 20250112
  7. RURIOCTOCOG ALFA PEGOL [Suspect]
     Active Substance: RURIOCTOCOG ALFA PEGOL
     Dosage: 2000 INTERNATIONAL UNIT, 1/WEEK
  8. RURIOCTOCOG ALFA PEGOL [Suspect]
     Active Substance: RURIOCTOCOG ALFA PEGOL
     Dosage: 3000 INTERNATIONAL UNIT, 1/WEEK

REACTIONS (4)
  - Intestinal haemorrhage [Unknown]
  - Haematoma [Recovered/Resolved]
  - Haematuria [Recovered/Resolved]
  - Head injury [Unknown]

NARRATIVE: CASE EVENT DATE: 20230804
